FAERS Safety Report 11154996 (Version 1)
Quarter: 2015Q2

REPORT INFORMATION
  Report Type: Spontaneous
  Country: US (occurrence: None)
  Receive Date: 20150601
  Receipt Date: 20150601
  Transmission Date: 20150821
  Serious: No
  Sender: FDA-Public Use
  Company Number: None

PATIENT
  Age: 35 Year
  Sex: Female
  Weight: 74.39 kg

DRUGS (1)
  1. LEVOFLOXACIN 500 MG [Suspect]
     Active Substance: LEVOFLOXACIN
     Indication: SINUSITIS
     Dosage: ? TAB, QD, PO
     Route: 048
     Dates: start: 20150409, end: 20150413

REACTIONS (3)
  - Myalgia [None]
  - Arthralgia [None]
  - Walking aid user [None]

NARRATIVE: CASE EVENT DATE: 20150412
